FAERS Safety Report 16121234 (Version 1)
Quarter: 2019Q1

REPORT INFORMATION
  Report Type: Spontaneous
  Country: GB (occurrence: GB)
  Receive Date: 20190327
  Receipt Date: 20190327
  Transmission Date: 20190418
  Serious: Yes (Hospitalization)
  Sender: FDA-Public Use
  Company Number: GB-ACCORD-079682

PATIENT
  Age: 28 Year
  Sex: Female

DRUGS (2)
  1. CETUXIMAB. [Suspect]
     Active Substance: CETUXIMAB
     Indication: PRODUCT USED FOR UNKNOWN INDICATION
     Dates: start: 20081224
  2. IRINOTECAN [Suspect]
     Active Substance: IRINOTECAN
     Indication: PRODUCT USED FOR UNKNOWN INDICATION
     Dates: start: 20081222

REACTIONS (3)
  - Headache [Unknown]
  - Encephalopathy [Unknown]
  - Seizure [Unknown]

NARRATIVE: CASE EVENT DATE: 20081225
